FAERS Safety Report 6255311-4 (Version None)
Quarter: 2009Q3

REPORT INFORMATION
  Report Type: 
  Country: None (occurrence: None)
  Receive Date: 20090702
  Receipt Date: 20090624
  Transmission Date: 20100115
  Serious: Yes (Death)
  Sender: FDA-Public Use
  Company Number: GB-JNJFOC-20080304375

PATIENT
  Age: 88 Year
  Sex: Male

DRUGS (5)
  1. PALIPERIDONE [Suspect]
     Indication: DRUG USE FOR UNKNOWN INDICATION
     Route: 048
  2. ACETYLSALICYLIC ACID [Concomitant]
     Indication: TRANSIENT ISCHAEMIC ATTACK
  3. METOPROLOL SUCCINATE [Concomitant]
     Indication: TYPE 2 DIABETES MELLITUS
  4. ATORVASTATIN CALCIUM [Concomitant]
     Indication: TYPE 2 DIABETES MELLITUS
  5. INSULIN [Concomitant]
     Indication: TYPE 2 DIABETES MELLITUS

REACTIONS (1)
  - MYOCARDIAL INFARCTION [None]
